FAERS Safety Report 13639908 (Version 1)
Quarter: 2017Q2

REPORT INFORMATION
  Report Type: Spontaneous
  Country: US (occurrence: US)
  Receive Date: 20170609
  Receipt Date: 20170609
  Transmission Date: 20170830
  Serious: No
  Sender: FDA-Public Use
  Company Number: US-ROCHE-768825

PATIENT
  Age: 81 Year
  Sex: Female
  Weight: 49.9 kg

DRUGS (6)
  1. XENAZINE [Suspect]
     Active Substance: TETRABENAZINE
     Route: 048
  2. XENAZINE [Suspect]
     Active Substance: TETRABENAZINE
     Indication: CHOREA
     Route: 048
  3. BENADRYL [Suspect]
     Active Substance: DIPHENHYDRAMINE HYDROCHLORIDE
     Indication: INSOMNIA
     Route: 065
  4. ADVIL [Suspect]
     Active Substance: IBUPROFEN
     Indication: INSOMNIA
     Route: 065
  5. XENAZINE [Suspect]
     Active Substance: TETRABENAZINE
     Route: 048
  6. KLONOPIN [Suspect]
     Active Substance: CLONAZEPAM
     Indication: PRODUCT USED FOR UNKNOWN INDICATION
     Route: 065

REACTIONS (10)
  - Tearfulness [Recovered/Resolved]
  - Vision blurred [Recovered/Resolved]
  - Dizziness [Recovered/Resolved]
  - Malaise [Recovered/Resolved]
  - Anxiety [Recovering/Resolving]
  - Claustrophobia [Recovered/Resolved]
  - Insomnia [Unknown]
  - Emotional distress [Recovered/Resolved]
  - Dizziness [Recovered/Resolved]
  - Feeling abnormal [Recovering/Resolving]

NARRATIVE: CASE EVENT DATE: 201011
